FAERS Safety Report 26178935 (Version 1)
Quarter: 2025Q4

REPORT INFORMATION
  Report Type: Spontaneous
  Country: GB (occurrence: GB)
  Receive Date: 20251219
  Receipt Date: 20251219
  Transmission Date: 20260118
  Serious: Yes (Death)
  Sender: ADVANZ PHARMA
  Company Number: GB-ADVANZ PHARMA-202512011060

PATIENT

DRUGS (1)
  1. PREDNISOLONE [Suspect]
     Active Substance: PREDNISOLONE
     Indication: Dermatomyositis
     Dosage: UNK (HIGH DOSE)
     Route: 048

REACTIONS (1)
  - Drug ineffective [Fatal]
